FAERS Safety Report 4753704-5 (Version None)
Quarter: 2005Q3

REPORT INFORMATION
  Report Type: 
  Country: None (occurrence: None)
  Receive Date: 20050824
  Receipt Date: 20050812
  Transmission Date: 20060218
  Serious: Yes (Hospitalization)
  Sender: FDA-Public Use
  Company Number: 12025

PATIENT
  Age: 7 Year
  Sex: Male
  Weight: 31 kg

DRUGS (1)
  1. METHOTREXATE [Suspect]
     Indication: RHEUMATOID ARTHRITIS
     Dosage: 20 MG FREQ SC
     Route: 058
     Dates: start: 19980818

REACTIONS (2)
  - ARTHRITIS [None]
  - CONDITION AGGRAVATED [None]
